FAERS Safety Report 4441667-1 (Version None)
Quarter: 2004Q3

REPORT INFORMATION
  Report Type: 
  Country: None (occurrence: None)
  Receive Date: 20040907
  Receipt Date: 20040826
  Transmission Date: 20050211
  Serious: Yes (Hospitalization)
  Sender: FDA-Public Use
  Company Number: FR-JNJFOC-20040808761

PATIENT
  Age: 56 Year
  Sex: Male

DRUGS (2)
  1. ZALDIAR [Suspect]
     Route: 049
  2. CELEBREX [Concomitant]
     Route: 049

REACTIONS (10)
  - BLOOD AMYLASE INCREASED [None]
  - EOSINOPENIA [None]
  - EOSINOPHILIA [None]
  - INFECTION [None]
  - LIPASE INCREASED [None]
  - NECROSIS [None]
  - PANNICULITIS [None]
  - RASH [None]
  - RED BLOOD CELL COUNT DECREASED [None]
  - WEIGHT DECREASED [None]
